FAERS Safety Report 9733231 (Version 1)
Quarter: 2013Q4

REPORT INFORMATION
  Report Type: Spontaneous
  Country: US (occurrence: US)
  Receive Date: 20131205
  Receipt Date: 20131205
  Transmission Date: 20140711
  Serious: No
  Sender: FDA-Public Use
  Company Number: US-PFIZER INC-2013347207

PATIENT
  Age: 56 Year
  Sex: Female
  Weight: 88.89 kg

DRUGS (2)
  1. EFFEXOR XR [Suspect]
     Indication: PAIN
     Dosage: UNK
     Dates: start: 2013, end: 2013
  2. EFFEXOR XR [Suspect]
     Indication: FIBROMYALGIA

REACTIONS (3)
  - Off label use [Recovered/Resolved]
  - Drug ineffective for unapproved indication [Unknown]
  - Malaise [Unknown]
